FAERS Safety Report 23643236 (Version 1)
Quarter: 2024Q1

REPORT INFORMATION
  Report Type: Spontaneous
  Country: US (occurrence: None)
  Receive Date: 20240315
  Receipt Date: 20240315
  Transmission Date: 20240410
  Serious: Yes (unspecified)
  Sender: FDA-Public Use
  Company Number: None

PATIENT
  Age: 45 Year
  Sex: Female
  Weight: 99.79 kg

DRUGS (1)
  1. TEZSPIRE [Suspect]
     Active Substance: TEZEPELUMAB-EKKO
     Indication: Asthma
     Dosage: FREQUENCY : 4 TIMES A DAY;?
     Route: 058

REACTIONS (3)
  - Urticaria [None]
  - Tachycardia [None]
  - Drug hypersensitivity [None]

NARRATIVE: CASE EVENT DATE: 20240314
